FAERS Safety Report 15907199 (Version 1)
Quarter: 2019Q1

REPORT INFORMATION
  Report Type: Spontaneous
  Country: US (occurrence: US)
  Receive Date: 20190204
  Receipt Date: 20190204
  Transmission Date: 20190417
  Serious: No
  Sender: FDA-Public Use
  Company Number: US-PFIZER INC-2019037769

PATIENT
  Age: 69 Year
  Sex: Female

DRUGS (7)
  1. VENLAFAXINE HCL [Suspect]
     Active Substance: VENLAFAXINE HYDROCHLORIDE
     Dosage: UNK
  2. LAMICTAL [Suspect]
     Active Substance: LAMOTRIGINE
     Dosage: UNK
  3. HYCOTUSS [Suspect]
     Active Substance: GUAIFENESIN\HYDROCODONE BITARTRATE
     Dosage: UNK
  4. INDOCIN [Suspect]
     Active Substance: INDOMETHACIN
     Dosage: UNK
  5. GABITRIL [Suspect]
     Active Substance: TIAGABINE HYDROCHLORIDE
     Dosage: UNK
  6. TRAZODONE HYDROCHLORIDE. [Suspect]
     Active Substance: TRAZODONE HYDROCHLORIDE
     Dosage: UNK
  7. REQUIP [Suspect]
     Active Substance: ROPINIROLE HYDROCHLORIDE
     Dosage: UNK

REACTIONS (2)
  - Drug hypersensitivity [Unknown]
  - Agitation [Unknown]
